FAERS Safety Report 9149698 (Version 2)
Quarter: 2013Q1

REPORT INFORMATION
  Report Type: Spontaneous
  Country: US (occurrence: None)
  Receive Date: 20130301
  Receipt Date: 20130301
  Transmission Date: 20140127
  Serious: Yes (Hospitalization)
  Sender: FDA-Public Use
  Company Number: None

PATIENT
  Sex: Female
  Weight: 123.06 kg

DRUGS (2)
  1. CISPLATIN [Suspect]
  2. PEMETREXED [Suspect]

REACTIONS (3)
  - Pathological fracture [None]
  - Atelectasis [None]
  - Hydronephrosis [None]
